FAERS Safety Report 24102042 (Version 2)
Quarter: 2024Q3

REPORT INFORMATION
  Report Type: Spontaneous
  Country: US (occurrence: US)
  Receive Date: 20240717
  Receipt Date: 20240722
  Transmission Date: 20241017
  Serious: No
  Sender: BIONPHARMA
  Company Number: US-Bion-013444

PATIENT
  Age: 39 Year
  Sex: Female

DRUGS (1)
  1. CETIRIZINE [Suspect]
     Active Substance: CETIRIZINE HYDROCHLORIDE
     Indication: Hypersensitivity
     Dates: start: 20240625

REACTIONS (2)
  - Drug ineffective [Not Recovered/Not Resolved]
  - Mental status changes [Unknown]
